FAERS Safety Report 24058157 (Version 1)
Quarter: 2024Q3

REPORT INFORMATION
  Report Type: Spontaneous
  Country: US (occurrence: US)
  Receive Date: 20240708
  Receipt Date: 20240708
  Transmission Date: 20241016
  Serious: Yes (Other)
  Sender: BRISTOL MYERS SQUIBB
  Company Number: US-BRISTOL-MYERS SQUIBB COMPANY-2024-103524

PATIENT
  Age: 85 Year
  Sex: Female

DRUGS (11)
  1. REVLIMID [Suspect]
     Active Substance: LENALIDOMIDE
     Indication: Plasma cell myeloma
     Route: 048
     Dates: start: 20230926
  2. BENZONATATE [Concomitant]
     Active Substance: BENZONATATE
  3. CEFUROXIME [Concomitant]
     Active Substance: CEFUROXIME
  4. CYCLOBENZAPRINE HYDROCHLORIDE [Concomitant]
     Active Substance: CYCLOBENZAPRINE HYDROCHLORIDE
  5. DARZALEX [Concomitant]
     Active Substance: DARATUMUMAB
     Dosage: 100/5ML
  6. DEXAMETHASONE [Concomitant]
     Active Substance: DEXAMETHASONE
  7. FOSFOMYCIN [Concomitant]
     Active Substance: FOSFOMYCIN
  8. LENALIDOMIDE [Concomitant]
     Active Substance: LENALIDOMIDE
  9. ONDANSETRON [Concomitant]
     Active Substance: ONDANSETRON
  10. PEPCID [Concomitant]
     Active Substance: FAMOTIDINE
  11. PRAMIPEXOLE [Concomitant]
     Active Substance: PRAMIPEXOLE\PRAMIPEXOLE DIHYDROCHLORIDE

REACTIONS (1)
  - Hip fracture [Unknown]
